FAERS Safety Report 5586358-9 (Version None)
Quarter: 2008Q1

REPORT INFORMATION
  Report Type: 
  Country: None (occurrence: None)
  Receive Date: 20080110
  Receipt Date: 20080104
  Transmission Date: 20080703
  Serious: Yes (Other)
  Sender: FDA-Public Use
  Company Number: PHEH2008US00539

PATIENT
  Age: 60 Year
  Sex: Male

DRUGS (7)
  1. ZOMETA [Suspect]
     Indication: MULTIPLE MYELOMA
     Dosage: 4MG, Q3MO
     Dates: end: 20071001
  2. LIPITOR [Concomitant]
  3. PROTONIX [Concomitant]
  4. ASPIRIN [Concomitant]
  5. EPOGEN [Concomitant]
  6. VITAMIN CAP [Concomitant]
  7. LEXAPRO [Concomitant]

REACTIONS (1)
  - OSTEONECROSIS [None]
